FAERS Safety Report 6049537-2 (Version None)
Quarter: 2009Q1

REPORT INFORMATION
  Report Type: 
  Country: None (occurrence: None)
  Receive Date: 20090121
  Receipt Date: 20090108
  Transmission Date: 20090719
  Serious: Yes (Other)
  Sender: FDA-Public Use
  Company Number: 141281

PATIENT
  Age: 47 Year
  Sex: Male

DRUGS (3)
  1. CYTARABINE [Suspect]
     Indication: MULTIPLE MYELOMA
  2. DAUNORUBICIN HCL [Suspect]
     Indication: MULTIPLE MYELOMA
  3. ETOPOSIDE [Suspect]
     Indication: MULTIPLE MYELOMA

REACTIONS (2)
  - INTERSTITIAL LUNG DISEASE [None]
  - PNEUMONIA [None]
